FAERS Safety Report 6573460-8 (Version None)
Quarter: 2010Q1

REPORT INFORMATION
  Report Type: 
  Country: None (occurrence: None)
  Receive Date: 20100204
  Receipt Date: 20100204
  Transmission Date: 20100710
  Serious: Yes (Other)
  Sender: FDA-Public Use
  Company Number: None

PATIENT
  Age: 58 Year
  Sex: Male
  Weight: 113.3993 kg

DRUGS (1)
  1. ZIACAM [Suspect]
     Indication: NASOPHARYNGITIS
     Dates: start: 20080601, end: 20080602

REACTIONS (1)
  - ANOSMIA [None]
